FAERS Safety Report 6534543-1 (Version None)
Quarter: 2009Q4

REPORT INFORMATION
  Report Type: 
  Country: None (occurrence: None)
  Receive Date: 20091228
  Receipt Date: 20071029
  Transmission Date: 20100525
  Serious: Yes (Life-Threatening)
  Sender: FDA-Public Use
  Company Number: BDI-010451

PATIENT
  Age: 53 Year
  Sex: Female

DRUGS (4)
  1. MULTIHANCE [Suspect]
     Indication: BRAIN MASS
     Dosage: 10ML ONCE INTRAVENOUS (NOT OTHERWISE SPECIFIED)
     Dates: start: 20071019, end: 20071019
  2. MULTIHANCE [Suspect]
     Indication: METASTASIS
     Dosage: 10ML ONCE INTRAVENOUS (NOT OTHERWISE SPECIFIED)
     Dates: start: 20071019, end: 20071019
  3. MULTIHANCE [Suspect]
     Indication: NUCLEAR MAGNETIC RESONANCE IMAGING BRAIN
     Dosage: 10ML ONCE INTRAVENOUS (NOT OTHERWISE SPECIFIED)
     Dates: start: 20071019, end: 20071019
  4. ATIVAN [Concomitant]

REACTIONS (3)
  - CONVULSION [None]
  - DEPRESSED LEVEL OF CONSCIOUSNESS [None]
  - PULSE PRESSURE DECREASED [None]
